FAERS Safety Report 5981443-1 (Version None)
Quarter: 2008Q4

REPORT INFORMATION
  Report Type: 
  Country: None (occurrence: None)
  Receive Date: 20081205
  Receipt Date: 20081128
  Transmission Date: 20090506
  Serious: Yes (Hospitalization)
  Sender: FDA-Public Use
  Company Number: AU-ELI_LILLY_AND_COMPANY-AU200812000421

PATIENT
  Age: 40 Year
  Sex: Male

DRUGS (3)
  1. FLUOXETINE [Suspect]
     Dosage: 10 MG, DAILY (1/D)
     Route: 048
     Dates: start: 20081118, end: 20081120
  2. FLUOXETINE [Suspect]
     Dosage: 20 MG, DAILY (1/D)
     Route: 048
     Dates: start: 20081120, end: 20081127
  3. VENTOLIN [Concomitant]

REACTIONS (5)
  - INSOMNIA [None]
  - LYMPHADENOPATHY [None]
  - PANIC ATTACK [None]
  - PYREXIA [None]
  - URTICARIA [None]
